FAERS Safety Report 12543530 (Version 1)
Quarter: 2016Q3

REPORT INFORMATION
  Report Type: Spontaneous
  Country: US (occurrence: None)
  Receive Date: 20160708
  Receipt Date: 20160708
  Transmission Date: 20161109
  Serious: Yes (Life-Threatening, Hospitalization)
  Sender: FDA-Public Use
  Company Number: None

PATIENT
  Age: 21 Year
  Sex: Female
  Weight: 79.38 kg

DRUGS (2)
  1. BLOODTHINNERS [Concomitant]
  2. TRI-SPRINTEC [Suspect]
     Active Substance: ETHINYL ESTRADIOL\NORGESTIMATE
     Indication: MENSTRUATION IRREGULAR
     Route: 048

REACTIONS (1)
  - Deep vein thrombosis [None]

NARRATIVE: CASE EVENT DATE: 20160706
